FAERS Safety Report 7533241-5 (Version None)
Quarter: 2011Q2

REPORT INFORMATION
  Report Type: 
  Country: None (occurrence: None)
  Receive Date: 20110608
  Receipt Date: 20110127
  Transmission Date: 20111010
  Serious: Yes (Hospitalization, Other)
  Sender: FDA-Public Use
  Company Number: US-BAYER-201039336NA

PATIENT
  Age: 30 Year
  Sex: Female
  Weight: 90.703 kg

DRUGS (6)
  1. AMBIEN CR [Concomitant]
     Indication: UNEVALUABLE EVENT
  2. MOTRIN [Concomitant]
  3. YASMIN [Suspect]
     Indication: PRODUCT USED FOR UNKNOWN INDICATION
     Route: 048
     Dates: start: 20050715, end: 20060926
  4. BENICAR [Concomitant]
     Dosage: 12.5 MG, QD
     Route: 048
  5. YAZ [Suspect]
     Indication: PRODUCT USED FOR UNKNOWN INDICATION
     Route: 048
  6. DROSPIRENONE AND ETHINYL ESTRADIOL [Suspect]
     Indication: PRODUCT USED FOR UNKNOWN INDICATION
     Route: 048

REACTIONS (8)
  - CHOLECYSTITIS CHRONIC [None]
  - ABDOMINAL PAIN UPPER [None]
  - DYSPNOEA [None]
  - ABDOMINAL PAIN [None]
  - CHEST DISCOMFORT [None]
  - DEEP VEIN THROMBOSIS [None]
  - BILIARY DYSKINESIA [None]
  - CHEST PAIN [None]
